FAERS Safety Report 16149474 (Version 1)
Quarter: 2019Q2

REPORT INFORMATION
  Report Type: Spontaneous
  Country: NL (occurrence: NL)
  Receive Date: 20190402
  Receipt Date: 20190402
  Transmission Date: 20190711
  Serious: Yes (Other)
  Sender: FDA-Public Use
  Company Number: NL-TAKEDA-2019TUS019338

PATIENT
  Sex: Female

DRUGS (2)
  1. DASATINIB. [Suspect]
     Active Substance: DASATINIB
     Indication: CHRONIC MYELOID LEUKAEMIA
     Dosage: 100 MILLIGRAM, QD
     Route: 065
  2. ICLUSIG [Suspect]
     Active Substance: PONATINIB
     Indication: PHILADELPHIA CHROMOSOME POSITIVE
     Dosage: UNK
     Route: 065

REACTIONS (7)
  - Philadelphia chromosome positive [Unknown]
  - Amylase increased [Unknown]
  - Abdominal pain [Unknown]
  - Pancreatitis [Unknown]
  - Cholelithiasis [Unknown]
  - Iridocyclitis [Unknown]
  - Lipase increased [Unknown]

NARRATIVE: CASE EVENT DATE: 201506
